FAERS Safety Report 19191219 (Version 1)
Quarter: 2021Q2

REPORT INFORMATION
  Report Type: Report from Study
  Country: None (occurrence: US)
  Receive Date: 20210429
  Receipt Date: 20210429
  Transmission Date: 20210717
  Serious: Yes (Other)
  Sender: FDA-Public Use
  Company Number: US-ABBVIE-20K-163-3563717-00

PATIENT
  Age: 79 Year
  Sex: Female

DRUGS (1)
  1. HUMIRA [Suspect]
     Active Substance: ADALIMUMAB
     Indication: CROHN^S DISEASE
     Dosage: CITRATE FREE
     Route: 058

REACTIONS (14)
  - Abdominal pain upper [Not Recovered/Not Resolved]
  - Gingivitis [Recovered/Resolved]
  - Tooth infection [Recovered/Resolved]
  - Limb injury [Recovering/Resolving]
  - Atrial fibrillation [Recovered/Resolved]
  - Joint dislocation [Recovering/Resolving]
  - Joint range of motion decreased [Unknown]
  - Head injury [Unknown]
  - Tooth repair [Unknown]
  - Fall [Recovered/Resolved]
  - Rectal spasm [Not Recovered/Not Resolved]
  - Stress [Unknown]
  - Gastric disorder [Not Recovered/Not Resolved]
  - Defaecation urgency [Not Recovered/Not Resolved]

NARRATIVE: CASE EVENT DATE: 202003
